FAERS Safety Report 12254098 (Version 1)
Quarter: 2016Q2

REPORT INFORMATION
  Report Type: Spontaneous
  Country: CA (occurrence: CA)
  Receive Date: 20160411
  Receipt Date: 20160411
  Transmission Date: 20160815
  Serious: Yes (Other)
  Sender: FDA-Public Use
  Company Number: CA-BAYER-2016-061294

PATIENT
  Age: 43 Year
  Sex: Female

DRUGS (2)
  1. CIPRO [Suspect]
     Active Substance: CIPROFLOXACIN HYDROCHLORIDE
     Indication: PRODUCT USED FOR UNKNOWN INDICATION
     Dosage: 500 MG, BID
     Route: 065
  2. FILGRASTIM [Suspect]
     Active Substance: FILGRASTIM
     Indication: PRODUCT USED FOR UNKNOWN INDICATION
     Dosage: 300 MG, UNK
     Route: 065

REACTIONS (8)
  - Syncope [Unknown]
  - Respiratory arrest [Unknown]
  - Loss of consciousness [Unknown]
  - Paraesthesia [Unknown]
  - Urinary incontinence [Unknown]
  - Hypotension [Unknown]
  - Seizure [Unknown]
  - Swelling face [Unknown]
